FAERS Safety Report 5535810-0 (Version None)
Quarter: 2007Q4

REPORT INFORMATION
  Report Type: 
  Country: None (occurrence: None)
  Receive Date: 20071206
  Receipt Date: 20071127
  Transmission Date: 20080405
  Serious: Yes (Other)
  Sender: FDA-Public Use
  Company Number: A0697355A

PATIENT
  Age: 63 Year
  Sex: Male

DRUGS (5)
  1. ALKERAN [Suspect]
     Indication: MULTIPLE MYELOMA
  2. REVLIMID [Suspect]
     Indication: MULTIPLE MYELOMA
     Route: 048
     Dates: start: 20061003, end: 20070326
  3. PREDNISONE TAB [Suspect]
  4. DEXAMETHASONE TAB [Suspect]
     Indication: DRUG USE FOR UNKNOWN INDICATION
  5. ARANESP [Concomitant]
     Indication: DRUG USE FOR UNKNOWN INDICATION
     Dosage: 200MG CYCLIC

REACTIONS (3)
  - DISEASE PROGRESSION [None]
  - MYELODYSPLASTIC SYNDROME [None]
  - PANCYTOPENIA [None]
